FAERS Safety Report 14455331 (Version 2)
Quarter: 2018Q1

REPORT INFORMATION
  Report Type: Spontaneous
  Country: IT (occurrence: IT)
  Receive Date: 20180129
  Receipt Date: 20180302
  Transmission Date: 20180509
  Serious: Yes (Life-Threatening, Hospitalization)
  Sender: FDA-Public Use
  Company Number: IT-TEVA-2018-IT-849563

PATIENT
  Age: 15 Year
  Sex: Female
  Weight: 85 kg

DRUGS (16)
  1. ETOPOSIDE. [Suspect]
     Active Substance: ETOPOSIDE
     Indication: AUTOLOGOUS BONE MARROW TRANSPLANTATION THERAPY
     Dosage: 400 MG, QD
     Route: 042
     Dates: start: 20170526, end: 20170529
  2. FOTEMUSTINE [Suspect]
     Active Substance: FOTEMUSTINE
     Indication: AUTOLOGOUS BONE MARROW TRANSPLANTATION THERAPY
     Dosage: 300 MG, QD
     Route: 042
     Dates: start: 20170524, end: 20170525
  3. ZOVIRAX [Concomitant]
     Active Substance: ACYCLOVIR
     Indication: PRODUCT USED FOR UNKNOWN INDICATION
     Dosage: 2400 MG,
     Route: 048
     Dates: start: 20170523, end: 20170529
  4. CYTARABINE. [Suspect]
     Active Substance: CYTARABINE
     Indication: AUTOLOGOUS BONE MARROW TRANSPLANTATION THERAPY
     Dosage: 400 MG, QD
     Route: 042
     Dates: start: 20170526, end: 20170529
  5. ALLOPURINOL. [Concomitant]
     Active Substance: ALLOPURINOL
     Indication: PRODUCT USED FOR UNKNOWN INDICATION
     Dosage: 300 MG,
     Route: 065
     Dates: start: 20170526, end: 20170531
  6. NYSTATIN. [Concomitant]
     Active Substance: NYSTATIN
     Indication: PRODUCT USED FOR UNKNOWN INDICATION
     Dosage: 30 ML, UNK
     Route: 065
  7. DEURSIL [Concomitant]
     Active Substance: URSODIOL
     Indication: PRODUCT USED FOR UNKNOWN INDICATION
     Dosage: 600 MG,
     Route: 048
     Dates: start: 20170523, end: 20170623
  8. POTASSIUM CHLORIDE. [Concomitant]
     Active Substance: POTASSIUM CHLORIDE
     Indication: PRODUCT USED FOR UNKNOWN INDICATION
     Dosage: 15 ML,
     Route: 065
     Dates: start: 20170524
  9. FLUCONAZOLE. [Concomitant]
     Active Substance: FLUCONAZOLE
     Indication: PRODUCT USED FOR UNKNOWN INDICATION
     Dosage: 400 MG, UNK
     Route: 065
     Dates: start: 20170523, end: 20170606
  10. MAGNESIUM CHLORIDE. [Concomitant]
     Active Substance: MAGNESIUM CHLORIDE
     Indication: PRODUCT USED FOR UNKNOWN INDICATION
     Dosage: 10 ML,
     Route: 065
     Dates: start: 20170525
  11. EMEND [Concomitant]
     Active Substance: APREPITANT
     Indication: PRODUCT USED FOR UNKNOWN INDICATION
     Route: 065
     Dates: start: 20170523, end: 20170527
  12. ALOXI [Concomitant]
     Active Substance: PALONOSETRON HYDROCHLORIDE
     Indication: PRODUCT USED FOR UNKNOWN INDICATION
     Dosage: 1 DF,
     Route: 042
     Dates: start: 20170524, end: 20170527
  13. RANITIDINE. [Concomitant]
     Active Substance: RANITIDINE
     Indication: PRODUCT USED FOR UNKNOWN INDICATION
     Dosage: 150 MG,
     Route: 048
     Dates: start: 20170523, end: 20170602
  14. LASIX [Concomitant]
     Active Substance: FUROSEMIDE
     Indication: PRODUCT USED FOR UNKNOWN INDICATION
     Dosage: 120 MG,
     Route: 042
     Dates: start: 20170523, end: 20170620
  15. HEPARIN [Concomitant]
     Active Substance: HEPARIN SODIUM
     Indication: PRODUCT USED FOR UNKNOWN INDICATION
     Dosage: 8500 IU, UNK
     Route: 058
     Dates: start: 20170523, end: 20170623
  16. CIPROXIN [Concomitant]
     Active Substance: CIPROFLOXACIN
     Indication: PRODUCT USED FOR UNKNOWN INDICATION
     Dosage: 1000 MG,
     Route: 048
     Dates: start: 20170523, end: 20170606

REACTIONS (2)
  - Thrombocytopenia [Recovered/Resolved]
  - Off label use [Unknown]

NARRATIVE: CASE EVENT DATE: 20170527
